FAERS Safety Report 15501061 (Version 1)
Quarter: 2018Q4

REPORT INFORMATION
  Report Type: Spontaneous
  Country: CA (occurrence: US)
  Receive Date: 20181015
  Receipt Date: 20181015
  Transmission Date: 20190205
  Serious: No
  Sender: FDA-Public Use
  Company Number: CA-MYLANLABS-2018M1070674

PATIENT
  Sex: Female
  Weight: 70 kg

DRUGS (1)
  1. ESTRADIOL TRANSDERMAL SYSTEM [Suspect]
     Active Substance: ESTRADIOL
     Indication: OESTROGEN REPLACEMENT THERAPY
     Dosage: UNK UNK, QW
     Route: 062

REACTIONS (2)
  - Application site erythema [Recovering/Resolving]
  - Application site pruritus [Recovering/Resolving]
